FAERS Safety Report 14166193 (Version 1)
Quarter: 2017Q4

REPORT INFORMATION
  Report Type: Spontaneous
  Country: US (occurrence: US)
  Receive Date: 20171107
  Receipt Date: 20171107
  Transmission Date: 20180321
  Serious: Yes (Hospitalization)
  Sender: FDA-Public Use
  Company Number: US-CELGENEUS-USA-20171100923

PATIENT
  Sex: Female

DRUGS (1)
  1. THALOMID [Suspect]
     Active Substance: THALIDOMIDE
     Indication: RASH PAPULAR
     Dosage: 50 MILLIGRAM
     Route: 048
     Dates: start: 201606

REACTIONS (1)
  - Polyuria [Unknown]

NARRATIVE: CASE EVENT DATE: 2017
